FAERS Safety Report 11322871 (Version 2)
Quarter: 2015Q3

REPORT INFORMATION
  Report Type: Spontaneous
  Country: CN (occurrence: CN)
  Receive Date: 20150730
  Receipt Date: 20150806
  Transmission Date: 20151125
  Serious: Yes (Death, Hospitalization)
  Sender: FDA-Public Use
  Company Number: CN-SA-2015SA109060

PATIENT
  Age: 57 Year
  Sex: Female

DRUGS (2)
  1. DOCETAXEL. [Suspect]
     Active Substance: DOCETAXEL
     Indication: BREAST CANCER
     Dosage: ON DAY 1
     Route: 041
     Dates: start: 20121008, end: 20121008
  2. PHARMORUBICIN [Suspect]
     Active Substance: EPIRUBICIN
     Indication: BREAST CANCER
     Dosage: ON DAY 1 AND 2
     Route: 041
     Dates: start: 20121008, end: 20121009

REACTIONS (24)
  - General physical health deterioration [Fatal]
  - Respiratory rate decreased [Fatal]
  - White blood cell count decreased [Fatal]
  - Asthenia [Fatal]
  - Respiratory failure [Fatal]
  - Cyanosis [Fatal]
  - Bone marrow failure [Fatal]
  - Wheezing [Fatal]
  - Respiratory rate increased [Fatal]
  - Heart rate decreased [Fatal]
  - Fatigue [Fatal]
  - Heart rate increased [Fatal]
  - Diarrhoea [Unknown]
  - Pneumonia [Fatal]
  - Platelet count decreased [Fatal]
  - Pyrexia [Fatal]
  - Chest discomfort [Fatal]
  - Acute respiratory distress syndrome [Fatal]
  - Oxygen saturation decreased [Fatal]
  - Red blood cell count decreased [Fatal]
  - Haemoglobin decreased [Fatal]
  - Rales [Fatal]
  - Circulatory collapse [Fatal]
  - Blood pressure decreased [Fatal]

NARRATIVE: CASE EVENT DATE: 201210
